FAERS Safety Report 11906760 (Version 1)
Quarter: 2016Q1

REPORT INFORMATION
  Report Type: Spontaneous
  Country: US (occurrence: None)
  Receive Date: 20160108
  Receipt Date: 20160108
  Transmission Date: 20160526
  Serious: No
  Sender: FDA-Public Use
  Company Number: None

PATIENT
  Sex: Female
  Weight: 78.47 kg

DRUGS (1)
  1. RISPERDONE [Suspect]
     Active Substance: RISPERIDONE
     Dosage: CONTAINS PLSTIC GLOBULES WHICH ARE MOST UNLIKELY TO DISSOLVE IN MUSCLE TISSUE; VERY LIKELY TO COAGULATE RANDOMLY IN A SUBJECTS BODY, STOPPING NORMAL BODY FUNCTIONS.

REACTIONS (13)
  - Skin mass [None]
  - Reaction to drug excipients [None]
  - Infrequent bowel movements [None]
  - Dyspnoea [None]
  - Aptyalism [None]
  - Muscle spasms [None]
  - Malaise [None]
  - Gastrointestinal disorder [None]
  - Discomfort [None]
  - Urinary retention [None]
  - Infection [None]
  - Aspiration [None]
  - Dry eye [None]
